FAERS Safety Report 24264798 (Version 2)
Quarter: 2024Q3

REPORT INFORMATION
  Report Type: Spontaneous
  Country: RS (occurrence: RS)
  Receive Date: 20240829
  Receipt Date: 20240901
  Transmission Date: 20241016
  Serious: Yes (Life-Threatening, Hospitalization, Other)
  Sender: BRISTOL MYERS SQUIBB
  Company Number: RS-BRISTOL-MYERS SQUIBB COMPANY-2024-133024

PATIENT
  Age: 75 Year
  Sex: Male

DRUGS (6)
  1. OPDIVO [Suspect]
     Active Substance: NIVOLUMAB
     Indication: Malignant melanoma
     Dosage: 7 CYCLE
     Route: 042
     Dates: start: 20230707, end: 20240110
  2. ELIQUIS [Concomitant]
     Active Substance: APIXABAN
     Indication: Product used for unknown indication
     Route: 048
  3. BISOPROLOL [Concomitant]
     Active Substance: BISOPROLOL\BISOPROLOL FUMARATE
     Indication: Product used for unknown indication
     Route: 048
  4. ENTRESTO [Concomitant]
     Active Substance: SACUBITRIL\VALSARTAN
     Indication: Product used for unknown indication
     Dosage: 51MG+49MG
     Route: 048
  5. INSPRA [Concomitant]
     Active Substance: EPLERENONE
     Indication: Product used for unknown indication
     Route: 048
  6. TRIMETACOR [Concomitant]
     Indication: Product used for unknown indication
     Dosage: EXTENDED-RELEASE TABLET
     Route: 048

REACTIONS (3)
  - Pemphigoid [Recovered/Resolved with Sequelae]
  - Arthritis bacterial [Recovered/Resolved with Sequelae]
  - Streptococcal sepsis [Recovered/Resolved with Sequelae]

NARRATIVE: CASE EVENT DATE: 20240124
